FAERS Safety Report 5410376-4 (Version None)
Quarter: 2007Q3

REPORT INFORMATION
  Report Type: 
  Country: None (occurrence: None)
  Receive Date: 20070713
  Receipt Date: 20070608
  Transmission Date: 20080115
  Serious: No
  Sender: FDA-Public Use
  Company Number: 2007SP002162

PATIENT
  Age: 86 Year
  Sex: Female

DRUGS (3)
  1. LUNESTA [Suspect]
     Indication: INSOMNIA
     Dosage: 2 MG;HS;ORAL; 1 MG;1X;ORAL
     Route: 048
     Dates: start: 20070605, end: 20070606
  2. LUNESTA [Suspect]
     Indication: INSOMNIA
     Dosage: 2 MG;HS;ORAL; 1 MG;1X;ORAL
     Route: 048
     Dates: start: 20070607, end: 20070607
  3. LUNESTA [Suspect]
     Indication: INSOMNIA
     Dosage: 2 MG;HS;ORAL; 1 MG;1X;ORAL
     Route: 048
     Dates: start: 20070608

REACTIONS (3)
  - AGITATION [None]
  - DEPRESSION [None]
  - RESTLESSNESS [None]
